FAERS Safety Report 8015427-9 (Version None)
Quarter: 2011Q4

REPORT INFORMATION
  Report Type: 
  Country: None (occurrence: None)
  Receive Date: 20111230
  Receipt Date: 20111222
  Transmission Date: 20120403
  Serious: Yes (Life-Threatening)
  Sender: FDA-Public Use
  Company Number: JP-BRISTOL-MYERS SQUIBB COMPANY-16309114

PATIENT
  Age: 81 Year
  Sex: Male

DRUGS (7)
  1. CRESTOR [Suspect]
     Route: 048
     Dates: start: 20111031
  2. LASIX [Concomitant]
  3. METFORMIN HCL [Suspect]
     Indication: DYSLIPIDAEMIA
     Dosage: 250MGBID
     Route: 048
     Dates: start: 20110926, end: 20111212
  4. METFORMIN HCL [Suspect]
     Indication: DIABETES MELLITUS
     Dosage: 250MGBID
     Route: 048
     Dates: start: 20110926, end: 20111212
  5. MAGNESIUM SULFATE [Concomitant]
  6. GLIMICRON [Concomitant]
     Indication: DIABETES MELLITUS
     Route: 048
     Dates: start: 20090101
  7. ARGAMATE [Concomitant]

REACTIONS (5)
  - HEPATIC FUNCTION ABNORMAL [None]
  - BILIRUBINURIA [None]
  - HYPERLIPIDAEMIA [None]
  - BLOOD CHOLESTEROL INCREASED [None]
  - HAEMATURIA [None]
